FAERS Safety Report 5317920-6 (Version None)
Quarter: 2007Q2

REPORT INFORMATION
  Report Type: 
  Country: None (occurrence: None)
  Receive Date: 20070507
  Receipt Date: 20070426
  Transmission Date: 20071010
  Serious: Yes (Other)
  Sender: FDA-Public Use
  Company Number: B0469243A

PATIENT
  Age: 68 Year
  Sex: Female
  Weight: 90 kg

DRUGS (2)
  1. ARIXTRA [Suspect]
     Indication: PULMONARY EMBOLISM
     Dosage: 7.5MG PER DAY
     Route: 058
  2. ANTIBIOTIC [Concomitant]
     Indication: ARTHRITIS INFECTIVE

REACTIONS (2)
  - HAEMATOMA [None]
  - THROMBOCYTOPENIA [None]
